FAERS Safety Report 18732522 (Version 1)
Quarter: 2021Q1

REPORT INFORMATION
  Report Type: Report from Study
  Country: None (occurrence: BR)
  Receive Date: 20210113
  Receipt Date: 20210113
  Transmission Date: 20210419
  Serious: Yes (Other)
  Sender: FDA-Public Use
  Company Number: BR-COEPTIS PHARMACEUTICALS, INC.-COE-2021-000001

PATIENT
  Age: 12 Year
  Sex: Male

DRUGS (6)
  1. CYCLOSPORINE. [Suspect]
     Active Substance: CYCLOSPORINE
  2. AMLODIPINE [Suspect]
     Active Substance: AMLODIPINE BESYLATE
  3. URSODEOXYCHOLIC ACID [Concomitant]
     Active Substance: URSODIOL
  4. ACYCLOVIR. [Concomitant]
     Active Substance: ACYCLOVIR
  5. CAPTOPRIL. [Concomitant]
     Active Substance: CAPTOPRIL
  6. TRIMETHOPRIM?SULFAMETOXAZOL [Concomitant]

REACTIONS (2)
  - Gingival hypertrophy [Not Recovered/Not Resolved]
  - Pyogenic granuloma [Not Recovered/Not Resolved]
